FAERS Safety Report 13513811 (Version 24)
Quarter: 2021Q3

REPORT INFORMATION
  Report Type: Spontaneous
  Country: US (occurrence: US)
  Receive Date: 20170504
  Receipt Date: 20210720
  Transmission Date: 20211014
  Serious: Yes (Hospitalization, Other)
  Sender: FDA-Public Use
  Company Number: US-PFIZER INC-2017194189

PATIENT
  Age: 54 Year
  Sex: Female
  Weight: 43 kg

DRUGS (29)
  1. LYRICA [Suspect]
     Active Substance: PREGABALIN
     Indication: NERVE INJURY
     Dosage: 425 MG, DAILY
     Route: 048
  2. LYRICA [Suspect]
     Active Substance: PREGABALIN
     Dosage: 25 MG, 2X/DAY (ONE 25 MG CAPSULE TWICE DAILY)
     Route: 048
  3. LYRICA [Suspect]
     Active Substance: PREGABALIN
     Dosage: 25 MG, 3X/DAY
  4. LYRICA [Suspect]
     Active Substance: PREGABALIN
     Dosage: UNK UNK (INSTEAD OF TAKING 3. I TAKE 25, 50 AND 75)
  5. LYRICA [Suspect]
     Active Substance: PREGABALIN
     Dosage: 25 MG 3X/DAY (25 MG 1 PO TID)
     Route: 048
  6. KLONOPIN [Concomitant]
     Active Substance: CLONAZEPAM
     Indication: NERVE INJURY
  7. LYRICA [Suspect]
     Active Substance: PREGABALIN
     Indication: VULVOVAGINAL PAIN
     Dosage: 75 MG, UNK
     Dates: start: 2004
  8. LYRICA [Suspect]
     Active Substance: PREGABALIN
     Dosage: 25 MG, 2X/DAY
     Route: 048
  9. LYRICA [Suspect]
     Active Substance: PREGABALIN
     Dosage: 50 MG, 3X/DAY
     Route: 048
  10. LYRICA [Suspect]
     Active Substance: PREGABALIN
     Dosage: 25 MG, 2X/DAY (FOR 30 DAYS)
     Route: 048
  11. LYRICA [Suspect]
     Active Substance: PREGABALIN
     Dosage: 50 MG, 3X/DAY (FOR 30 DAYS)
     Route: 048
  12. LYRICA [Suspect]
     Active Substance: PREGABALIN
     Dosage: 75 MG
  13. KLONOPIN [Concomitant]
     Active Substance: CLONAZEPAM
     Indication: ANXIETY
     Dosage: 1 MG, 3X/DAY
     Route: 048
  14. BACLOFEN. [Concomitant]
     Active Substance: BACLOFEN
     Indication: MUSCLE RELAXANT THERAPY
     Dosage: 20 MG, UNK
  15. LYRICA [Suspect]
     Active Substance: PREGABALIN
     Dosage: 400 MG, DAILY
  16. LYRICA [Suspect]
     Active Substance: PREGABALIN
     Dosage: 50 MG, 3X/DAY
     Route: 048
  17. LYRICA [Suspect]
     Active Substance: PREGABALIN
     Dosage: 50 MG, 3X/DAY(ONE 50 MG CAPSULE THREE TIMES A DAY)
     Route: 048
  18. LYRICA [Suspect]
     Active Substance: PREGABALIN
     Dosage: 400 MG, DAILY
  19. LYRICA [Suspect]
     Active Substance: PREGABALIN
     Dosage: 75 MG, 3X/DAY
     Route: 048
  20. LYRICA [Suspect]
     Active Substance: PREGABALIN
     Dosage: 75 MG, 3X/DAY (FOR 30 DAYS)
     Route: 048
  21. LYRICA [Suspect]
     Active Substance: PREGABALIN
     Dosage: UNK (REPORTED AS THREE DIFFERENT STRENGTHS)
  22. KLONOPIN [Concomitant]
     Active Substance: CLONAZEPAM
     Indication: VULVOVAGINAL PAIN
  23. LYRICA [Suspect]
     Active Substance: PREGABALIN
     Dosage: UNK (REPORTED AS THREE DIFFERENT STRENGTHS)
  24. FLEXERIL [Concomitant]
     Active Substance: CYCLOBENZAPRINE HYDROCHLORIDE
     Indication: MUSCLE RELAXANT THERAPY
     Dosage: 20 MG, UNK
  25. MUCINEX [Concomitant]
     Active Substance: GUAIFENESIN
     Indication: MUSCLE RELAXANT THERAPY
     Dosage: UNK
  26. LYRICA [Suspect]
     Active Substance: PREGABALIN
     Indication: BACK PAIN
     Dosage: 75 MG, 3X/DAY (ONE 75 MG CAPSULE THREE TIMES A DAY)
     Route: 048
  27. LYRICA [Suspect]
     Active Substance: PREGABALIN
     Dosage: 400 MG, DAILY
  28. LYRICA [Suspect]
     Active Substance: PREGABALIN
     Dosage: 50 MG, UNK
  29. LYRICA [Suspect]
     Active Substance: PREGABALIN
     Dosage: 50 MG 3X/DAY (25 MG 1 PO TID)
     Route: 048

REACTIONS (19)
  - Hernia [Recovered/Resolved]
  - Immune system disorder [Unknown]
  - Somnolence [Unknown]
  - Gastrooesophageal reflux disease [Unknown]
  - Abdominal discomfort [Unknown]
  - Drug effective for unapproved indication [Unknown]
  - Groin pain [Not Recovered/Not Resolved]
  - Diverticulitis [Unknown]
  - Vulvovaginal mycotic infection [Unknown]
  - Vulvovaginal erythema [Unknown]
  - Pain [Unknown]
  - Weight decreased [Unknown]
  - Impaired work ability [Unknown]
  - Intentional product misuse [Unknown]
  - Stress [Unknown]
  - Vulvovaginal pruritus [Unknown]
  - Insomnia [Unknown]
  - Haemorrhage [Unknown]
  - Eructation [Unknown]

NARRATIVE: CASE EVENT DATE: 2004
